FAERS Safety Report 5810688-6 (Version None)
Quarter: 2008Q3

REPORT INFORMATION
  Report Type: 
  Country: None (occurrence: None)
  Receive Date: 20080715
  Receipt Date: 20071210
  Transmission Date: 20090109
  Serious: No
  Sender: FDA-Public Use
  Company Number: US-BOEHRINGER INGELHEIM GMBH, GERMANY-2007-BP-01981BP

PATIENT
  Sex: Male
  Weight: 78 kg

DRUGS (24)
  1. MIRAPEX [Suspect]
     Indication: PARKINSON'S DISEASE
     Dosage: BETWEEN 0.25MG THREE TIMES A DAY TO 1.5 MG 3X A DAY
     Route: 048
     Dates: start: 20020620, end: 20051201
  2. SINEMET [Concomitant]
     Indication: PARKINSON'S DISEASE
     Dates: start: 19980101, end: 20060101
  3. TASMAR [Concomitant]
     Dates: start: 19970101
  4. TASMAR [Concomitant]
     Dates: start: 19990101
  5. TEMAZEPAM [Concomitant]
     Indication: SLEEP DISORDER
  6. PREVACID [Concomitant]
     Indication: OESOPHAGITIS
     Dates: start: 19990901
  7. MOTRIN [Concomitant]
  8. SOMA [Concomitant]
  9. LUNESTA [Concomitant]
     Indication: INSOMNIA
     Dates: start: 20050101
  10. AMBIEN CR [Concomitant]
     Indication: INSOMNIA
     Dates: start: 20060101
  11. ROZEREM [Concomitant]
     Dates: start: 20060801
  12. PRILOSEC [Concomitant]
     Dates: start: 20020423
  13. IBUPROFEN [Concomitant]
     Indication: OSTEOARTHRITIS
     Dosage: 800 MG 1 TO 2 TABS DAILY
     Dates: start: 19950101
  14. IBUPROFEN [Concomitant]
     Indication: BACK PAIN
  15. IBUPROFEN [Concomitant]
     Indication: NECK PAIN
  16. PREDNISONE TAB [Concomitant]
     Indication: NECK PAIN
     Dosage: 10 BID
     Dates: start: 19980101, end: 20030201
  17. PREDNISONE TAB [Concomitant]
     Indication: BACK PAIN
  18. DIAZEPAM [Concomitant]
     Dates: start: 20021101
  19. REQUIP [Concomitant]
     Indication: PARKINSON'S DISEASE
     Dosage: 0.25MG THREE TIMES A DAY INCREASED TO 8 MG 3X A DAY
     Dates: start: 19990101, end: 20020101
  20. SINEMET [Concomitant]
     Dosage: 25/250 4X DAILY
     Dates: start: 20000420
  21. MULTI-VITAMIN [Concomitant]
     Dates: start: 20020101
  22. VICODIN [Concomitant]
     Indication: PAIN
     Dosage: AS NEEDED
     Dates: start: 20000401
  23. VICODIN [Concomitant]
     Dosage: AS NEEDED
     Dates: start: 20020601
  24. CELEBREX [Concomitant]
     Indication: BACK PAIN
     Dosage: 200 MG BID
     Dates: start: 20020601

REACTIONS (4)
  - DEPRESSION [None]
  - EMOTIONAL DISTRESS [None]
  - OBSESSIVE-COMPULSIVE DISORDER [None]
  - PATHOLOGICAL GAMBLING [None]
